FAERS Safety Report 15143264 (Version 1)
Quarter: 2018Q3

REPORT INFORMATION
  Report Type: Report from Study
  Country: CA (occurrence: CA)
  Receive Date: 20180713
  Receipt Date: 20180713
  Transmission Date: 20181010
  Serious: Yes (Other)
  Sender: FDA-Public Use
  Company Number: CA-JNJFOC-20180710094

PATIENT
  Age: 22 Year
  Sex: Female
  Weight: 51.3 kg

DRUGS (2)
  1. ADRENAL [Concomitant]
     Active Substance: EPINEPHRINE
     Route: 065
  2. SIMPONI [Suspect]
     Active Substance: GOLIMUMAB
     Indication: COLITIS ULCERATIVE
     Route: 058
     Dates: start: 20180228

REACTIONS (4)
  - General physical health deterioration [Unknown]
  - Nasopharyngitis [Unknown]
  - Haematochezia [Unknown]
  - Frequent bowel movements [Unknown]

NARRATIVE: CASE EVENT DATE: 2018
